APPROVED DRUG PRODUCT: LAMIVUDINE AND ZIDOVUDINE
Active Ingredient: LAMIVUDINE; ZIDOVUDINE
Strength: 150MG;300MG
Dosage Form/Route: TABLET;ORAL
Application: N022018 | Product #001
Applicant: PHARMACARE LTD
Approved: Mar 17, 2017 | RLD: No | RS: No | Type: DISCN